FAERS Safety Report 5416453-6 (Version None)
Quarter: 2007Q3

REPORT INFORMATION
  Report Type: 
  Country: None (occurrence: None)
  Receive Date: 20070813
  Receipt Date: 20070813
  Transmission Date: 20080115
  Serious: No
  Sender: FDA-Public Use
  Company Number: None

PATIENT
  Age: 64 Year
  Sex: Female
  Weight: 68.0396 kg

DRUGS (1)
  1. ZOLPIDEM [Suspect]
     Indication: INSOMNIA
     Dosage: 1 TABLET BEDTIME PO
     Route: 048
     Dates: start: 20070525, end: 20070812

REACTIONS (3)
  - MIDDLE INSOMNIA [None]
  - MYALGIA [None]
  - SOMNOLENCE [None]
